FAERS Safety Report 14341120 (Version 1)
Quarter: 2018Q1

REPORT INFORMATION
  Report Type: Spontaneous
  Country: AU (occurrence: AU)
  Receive Date: 20180102
  Receipt Date: 20180102
  Transmission Date: 20180509
  Serious: Yes (Other)
  Sender: FDA-Public Use
  Company Number: AU-ROCHE-2047987

PATIENT
  Sex: Male

DRUGS (1)
  1. OCREVUS [Suspect]
     Active Substance: OCRELIZUMAB
     Indication: RELAPSING-REMITTING MULTIPLE SCLEROSIS
     Dosage: SECOND HALF DOSE ON 01/DEC/2017
     Route: 065
     Dates: start: 20171117

REACTIONS (3)
  - Gait disturbance [Unknown]
  - Fatigue [Unknown]
  - Muscular weakness [Unknown]
